FAERS Safety Report 17689003 (Version 9)
Quarter: 2021Q1

REPORT INFORMATION
  Report Type: Report from Study
  Country: US (occurrence: US)
  Receive Date: 20200421
  Receipt Date: 20210204
  Transmission Date: 20210419
  Serious: Yes (Hospitalization, Other)
  Sender: FDA-Public Use
  Company Number: US-PUMA BIOTECHNOLOGY, LTD.-2020US002012

PATIENT

DRUGS (4)
  1. NERLYNX [Suspect]
     Active Substance: NERATINIB
     Dosage: 240 MG, DAILY
     Route: 048
     Dates: start: 202004, end: 20200812
  2. NERLYNX [Suspect]
     Active Substance: NERATINIB
     Dosage: 240 MG, DAILY
     Route: 048
     Dates: start: 20200909, end: 20201030
  3. NERLYNX [Suspect]
     Active Substance: NERATINIB
     Indication: BREAST CANCER
     Dosage: 240 MG, DAILY
     Route: 048
     Dates: start: 20200401, end: 20200413
  4. NERLYNX [Suspect]
     Active Substance: NERATINIB
     Dosage: 240 MG, DAILY
     Route: 048
     Dates: start: 2020, end: 20210127

REACTIONS (24)
  - Fall [Not Recovered/Not Resolved]
  - Hyponatraemia [Recovering/Resolving]
  - Constipation [Not Recovered/Not Resolved]
  - Blood creatinine increased [Recovering/Resolving]
  - Asthenia [Not Recovered/Not Resolved]
  - Cough [Unknown]
  - Impaired quality of life [Not Recovered/Not Resolved]
  - Fungal infection [Not Recovered/Not Resolved]
  - Carbohydrate antigen 15-3 increased [Unknown]
  - Neuropathy peripheral [Not Recovered/Not Resolved]
  - Orthostatic hypotension [Not Recovered/Not Resolved]
  - Weight decreased [Unknown]
  - Product dose omission issue [Unknown]
  - Electrolyte imbalance [Recovering/Resolving]
  - Postoperative wound infection [Unknown]
  - Hypophagia [Unknown]
  - Decreased appetite [Unknown]
  - Blood urea increased [Recovering/Resolving]
  - Glomerular filtration rate decreased [Unknown]
  - Dysphagia [Unknown]
  - Fatigue [Not Recovered/Not Resolved]
  - Haematemesis [Unknown]
  - Diarrhoea [Recovered/Resolved]
  - Taste disorder [Not Recovered/Not Resolved]

NARRATIVE: CASE EVENT DATE: 2020
